FAERS Safety Report 15299653 (Version 3)
Quarter: 2018Q4

REPORT INFORMATION
  Report Type: Spontaneous
  Country: CA (occurrence: CA)
  Receive Date: 20180821
  Receipt Date: 20181026
  Transmission Date: 20190204
  Serious: Yes (Other)
  Sender: FDA-Public Use
  Company Number: CA-ORION CORPORATION ORION PHARMA-TREX2018-1729

PATIENT
  Age: 74 Year
  Sex: Male

DRUGS (16)
  1. VITALUX [Concomitant]
     Active Substance: MINERALS\VITAMINS
     Indication: MACULOPATHY
     Route: 065
  2. PREDNISONE. [Concomitant]
     Active Substance: PREDNISONE
     Dosage: AT VARIABLE DOSES
     Route: 065
     Dates: start: 20180216, end: 20180909
  3. RISEDRONATE [Concomitant]
     Active Substance: RISEDRONATE SODIUM
     Route: 065
  4. ROSUVASTATIN. [Concomitant]
     Active Substance: ROSUVASTATIN
     Route: 065
  5. AVAPRO [Concomitant]
     Active Substance: IRBESARTAN
     Route: 065
  6. VITAMIN D [Concomitant]
     Active Substance: CHOLECALCIFEROL
     Route: 065
  7. SULFASALAZINE. [Concomitant]
     Active Substance: SULFASALAZINE
     Dosage: PROGRESSIVELY
     Route: 065
     Dates: start: 20180502
  8. CLOPIDOGREL [Concomitant]
     Active Substance: CLOPIDOGREL BISULFATE
     Route: 065
  9. PANTOPRAZOLE [Concomitant]
     Active Substance: PANTOPRAZOLE
     Route: 065
  10. AMLODIPINE [Concomitant]
     Active Substance: AMLODIPINE BESYLATE
     Dosage: AT BEDTIME
     Route: 065
  11. CORTISONE [Concomitant]
     Active Substance: CORTISONE\HYDROCORTISONE
     Route: 065
     Dates: start: 2018
  12. FOLIC ACID. [Concomitant]
     Active Substance: FOLIC ACID
     Route: 065
  13. HYDROXYCHLOROQUINE [Concomitant]
     Active Substance: HYDROXYCHLOROQUINE
     Route: 065
     Dates: start: 20180215, end: 20180502
  14. ZOSTAVAX [Concomitant]
     Active Substance: VARICELLA-ZOSTER VIRUS STRAIN OKA/MERCK LIVE ANTIGEN
     Dosage: AT SINGLE DOSE
     Route: 065
     Dates: start: 20180606, end: 20180606
  15. METHOTREXATE (TRADE NAME UNKNOWN) [Suspect]
     Active Substance: METHOTREXATE
     Indication: RHEUMATOID ARTHRITIS
     Dosage: EVERY FRIDAY
     Route: 048
     Dates: start: 20180216
  16. CALCIUM [Concomitant]
     Active Substance: CALCIUM
     Route: 065

REACTIONS (10)
  - White blood cell disorder [Unknown]
  - Dizziness [Recovering/Resolving]
  - Malaise [Recovering/Resolving]
  - Asthenia [Not Recovered/Not Resolved]
  - Cerebrovascular accident [Unknown]
  - Therapeutic response decreased [Recovering/Resolving]
  - Fatigue [Not Recovered/Not Resolved]
  - Frequent bowel movements [Unknown]
  - Influenza like illness [Unknown]
  - Limb discomfort [Recovering/Resolving]

NARRATIVE: CASE EVENT DATE: 201806
